FAERS Safety Report 12964924 (Version 2)
Quarter: 2017Q1

REPORT INFORMATION
  Report Type: Spontaneous
  Country: US (occurrence: US)
  Receive Date: 20161122
  Receipt Date: 20170216
  Transmission Date: 20170428
  Serious: No
  Sender: FDA-Public Use
  Company Number: US-ALLERGAN-1671761US

PATIENT
  Age: 62 Year
  Sex: Female

DRUGS (2)
  1. KYBELLA [Suspect]
     Active Substance: DEOXYCHOLIC ACID
     Dosage: 4.8 ML, SINGLE
     Route: 058
     Dates: start: 20151030, end: 20151030
  2. KYBELLA [Suspect]
     Active Substance: DEOXYCHOLIC ACID
     Indication: FAT TISSUE INCREASED
     Dosage: 4.8 ML, SINGLE
     Route: 058
     Dates: start: 20150914, end: 20150914

REACTIONS (1)
  - Skin hyperpigmentation [Not Recovered/Not Resolved]
